FAERS Safety Report 5649651-7 (Version None)
Quarter: 2008Q1

REPORT INFORMATION
  Report Type: 
  Country: None (occurrence: None)
  Receive Date: 20080131
  Receipt Date: 20071125
  Transmission Date: 20080703
  Serious: No
  Sender: FDA-Public Use
  Company Number: US200711005739

PATIENT
  Age: 71 Year
  Sex: Male
  Weight: 80.3 kg

DRUGS (7)
  1. BYETTA [Suspect]
     Indication: TYPE 2 DIABETES MELLITUS
     Dosage: 5 UG, 2/D, SUBCUTANEOUS
     Route: 058
     Dates: start: 20071101
  2. METFORMIN HCL [Concomitant]
  3. ZOCOR [Concomitant]
  4. ACE INHIBITOR NOS [Concomitant]
  5. BETA BLOCKING AGENTS [Concomitant]
  6. CALCIUM CHANNEL BLOCKERS [Concomitant]
  7. DIURETICS [Concomitant]

REACTIONS (3)
  - INSOMNIA [None]
  - TREMOR [None]
  - WEIGHT DECREASED [None]
